FAERS Safety Report 23886875 (Version 2)
Quarter: 2024Q3

REPORT INFORMATION
  Report Type: Report from Study
  Country: US (occurrence: US)
  Receive Date: 20240522
  Receipt Date: 20240703
  Transmission Date: 20241017
  Serious: Yes (Other)
  Sender: ALEXION PHARMACEUTICALS
  Company Number: US-ALXN-202405USA001019US

PATIENT
  Sex: Female

DRUGS (1)
  1. STRENSIQ [Suspect]
     Active Substance: ASFOTASE ALFA
     Indication: Product used for unknown indication
     Dosage: UNK
     Route: 065

REACTIONS (18)
  - Fatigue [Not Recovered/Not Resolved]
  - Neck pain [Unknown]
  - Pain in jaw [Recovering/Resolving]
  - Muscle tightness [Unknown]
  - Initial insomnia [Unknown]
  - Middle insomnia [Unknown]
  - Myalgia [Unknown]
  - Muscle spasms [Unknown]
  - Migraine [Not Recovered/Not Resolved]
  - Musculoskeletal stiffness [Unknown]
  - Dizziness [Unknown]
  - Night sweats [Unknown]
  - Tinnitus [Unknown]
  - Pain in extremity [Unknown]
  - Foreign body sensation in eyes [Unknown]
  - Arthralgia [Unknown]
  - Back pain [Unknown]
  - Oropharyngeal pain [Unknown]
